FAERS Safety Report 5636920-X (Version None)
Quarter: 2008Q1

REPORT INFORMATION
  Report Type: 
  Country: None (occurrence: None)
  Receive Date: 20080225
  Receipt Date: 20080211
  Transmission Date: 20080703
  Serious: Yes (Hospitalization)
  Sender: FDA-Public Use
  Company Number: FR-ROCHE-547123

PATIENT
  Age: 42 Year
  Sex: Male

DRUGS (9)
  1. FUZEON [Suspect]
     Indication: HIV INFECTION
     Dosage: FORM: INJECTABLE SOLUTION.
     Route: 058
     Dates: start: 20070522
  2. TRIATEC [Suspect]
     Indication: CORONARY ARTERY DISEASE
     Route: 048
  3. KARDEGIC [Suspect]
     Indication: CORONARY ARTERY DISEASE
     Route: 048
  4. PREZISTA [Suspect]
     Indication: HIV INFECTION
     Route: 065
     Dates: start: 20070522
  5. NORVIR [Suspect]
     Indication: HIV INFECTION
     Route: 048
     Dates: start: 20070522
  6. TMC 125 [Suspect]
     Indication: HIV INFECTION
     Route: 048
     Dates: start: 20070522
  7. EZETROL [Concomitant]
     Route: 048
  8. FRACTAL [Concomitant]
     Dosage: REPORTED AS FRACTAL L.P. DOSAGE REPORTED AS 1 TABLET QDT.
     Route: 048
  9. CARDENSIEL [Concomitant]
     Indication: CORONARY ARTERY DISEASE
     Route: 048

REACTIONS (3)
  - ABDOMINAL PAIN UPPER [None]
  - COUGH [None]
  - OESOPHAGITIS [None]
